FAERS Safety Report 9149626 (Version 3)
Quarter: 2014Q2

REPORT INFORMATION
  Report Type: Spontaneous
  Country: US (occurrence: US)
  Receive Date: 20130308
  Receipt Date: 20140430
  Transmission Date: 20141212
  Serious: Yes (Hospitalization)
  Sender: FDA-Public Use
  Company Number: US-B.I. PHARMACEUTICALS,INC./RIDGEFIELD-2013-BI-05467BP

PATIENT
  Age: 85 Year
  Sex: Male
  Weight: 99.7 kg

DRUGS (14)
  1. PRADAXA [Suspect]
     Indication: ATRIAL FIBRILLATION
     Dosage: 300 MG
     Route: 065
     Dates: start: 201012, end: 20110627
  2. TOPROL XL [Concomitant]
     Dosage: 25 MG
     Route: 065
  3. AMBIEN [Concomitant]
     Route: 065
  4. CYMBALTA [Concomitant]
     Dosage: 60 MG
     Route: 048
  5. PRILOSEC [Concomitant]
     Dosage: 20 MG
     Route: 065
     Dates: start: 2003
  6. BENICAR [Concomitant]
     Dosage: 20 MG
     Route: 048
     Dates: start: 2003
  7. ACETAMINOPHEN [Concomitant]
     Route: 065
  8. PROSCAR [Concomitant]
     Dosage: 5 MG
     Route: 065
  9. FLOMAX [Concomitant]
     Dosage: 0.4 MG
     Route: 048
  10. BETAMETHASONE [Concomitant]
     Route: 065
  11. PRAVACHOL [Concomitant]
     Dosage: 20 MG
     Route: 065
  12. COLCHICINE [Concomitant]
     Indication: GOUT
     Dosage: 1.2 MG
     Route: 065
  13. LASIX [Concomitant]
     Dosage: 160 MG
     Route: 065
  14. ASTELIN [Concomitant]
     Indication: SINUS DISORDER
     Route: 065

REACTIONS (8)
  - Upper gastrointestinal haemorrhage [Recovered/Resolved]
  - Haemorrhagic anaemia [Unknown]
  - Renal failure acute [Unknown]
  - Syncope [Unknown]
  - Loss of consciousness [Unknown]
  - Fall [Unknown]
  - Contusion [Unknown]
  - Prothrombin time prolonged [Unknown]
